FAERS Safety Report 6807380-8 (Version None)
Quarter: 2010Q2

REPORT INFORMATION
  Report Type: 
  Country: None (occurrence: None)
  Receive Date: 20100629
  Receipt Date: 20081106
  Transmission Date: 20101027
  Serious: No
  Sender: FDA-Public Use
  Company Number: US-PFIZER INC-2008077745

PATIENT
  Sex: Female
  Weight: 60.78 kg

DRUGS (10)
  1. ZYVOX [Suspect]
     Indication: STAPHYLOCOCCAL INFECTION
     Route: 048
     Dates: start: 20080908, end: 20080921
  2. ZYVOX [Suspect]
     Indication: WOUND INFECTION
  3. SYNTHROID [Concomitant]
  4. ATENOLOL [Concomitant]
  5. PROZAC [Concomitant]
  6. ACIPHEX [Concomitant]
  7. VENLAFAXINE [Concomitant]
  8. POTASSIUM [Concomitant]
  9. AMBIEN [Concomitant]
  10. ZANAFLEX [Concomitant]

REACTIONS (13)
  - ABDOMINAL DISTENSION [None]
  - ARTHRALGIA [None]
  - ASTHENIA [None]
  - BLOOD GLUCOSE INCREASED [None]
  - COELIAC DISEASE [None]
  - CYST [None]
  - DECREASED APPETITE [None]
  - DIARRHOEA [None]
  - FATIGUE [None]
  - MALAISE [None]
  - MYALGIA [None]
  - PAIN [None]
  - WEIGHT DECREASED [None]
